FAERS Safety Report 8305050-0 (Version None)
Quarter: 2012Q2

REPORT INFORMATION
  Report Type: 
  Country: None (occurrence: None)
  Receive Date: 20120423
  Receipt Date: 20120416
  Transmission Date: 20120825
  Serious: Yes (Hospitalization)
  Sender: FDA-Public Use
  Company Number: FR-ROCHE-765351

PATIENT
  Sex: Female
  Weight: 53 kg

DRUGS (39)
  1. MYCOPHENOLATE MOFETIL (CELLCEPT) [Suspect]
     Indication: PROPHYLAXIS AGAINST TRANSPLANT REJECTION
     Dosage: FREQUENCY: DAILY.
     Route: 048
  2. MAG 2 [Concomitant]
     Dosage: TDD: 2 DOSES
  3. BICARBONATE DE SODIUM [Concomitant]
     Route: 048
  4. NOVORAPID [Concomitant]
     Dosage: TDD: 8+8+8 IU
     Route: 058
  5. CIPROFLOXACIN [Concomitant]
     Dates: start: 20100628, end: 20100718
  6. XYZAL [Concomitant]
     Route: 048
     Dates: start: 20100915, end: 20100929
  7. LEXOMIL [Concomitant]
     Route: 048
  8. ROCEPHIN [Concomitant]
     Route: 042
     Dates: start: 20100928, end: 20101016
  9. VALGANCICLOVIR [Concomitant]
     Dosage: TEMPORARILY DISCONTINUED FROM 28 JUN TO 05 JULY 2010
     Route: 048
     Dates: start: 20100521, end: 20100628
  10. PRAVASTATIN [Concomitant]
     Route: 048
  11. PHOSPHONEUROS [Concomitant]
     Route: 048
  12. POTASSIUM CHLORIDE [Concomitant]
     Dosage: TDD: 6 DOSES
     Route: 048
  13. POTASSIUM CHLORIDE [Concomitant]
     Route: 048
     Dates: start: 20100628, end: 20100930
  14. PANTOPRAZOLE SODIUM [Concomitant]
     Route: 048
  15. PANTOPRAZOLE SODIUM [Concomitant]
     Route: 048
  16. LEXOMIL [Concomitant]
     Route: 048
  17. NOVOMIX [Concomitant]
     Route: 058
     Dates: start: 20100811, end: 20100906
  18. TACROLIMUS [Suspect]
     Indication: PROPHYLAXIS AGAINST TRANSPLANT REJECTION
     Dosage: DRUG DISCONTINUED
     Route: 048
     Dates: start: 20100516, end: 20100923
  19. VALGANCICLOVIR [Concomitant]
     Dosage: FREQUENCY: PER 48 HOUR
     Route: 048
  20. AMLODIPINE BESYLATE [Concomitant]
     Route: 048
  21. INSULATARD NPH HUMAN [Concomitant]
     Dosage: TDD: 20+9 IU
     Dates: start: 20100703, end: 20100806
  22. LANTUS [Concomitant]
     Route: 058
  23. GENTAMICIN [Concomitant]
     Route: 042
     Dates: start: 20100928, end: 20101002
  24. PREDNISONE [Suspect]
     Indication: PROPHYLAXIS AGAINST TRANSPLANT REJECTION
     Dosage: FREQUENCY: DAILY.
     Route: 048
  25. MABTHERA [Concomitant]
     Dosage: FREQ: DAILY
     Route: 042
     Dates: start: 20100926, end: 20100927
  26. POLYETHYLENE GLYCOL [Concomitant]
     Route: 048
  27. ASPIRIN [Concomitant]
  28. TACROLIMUS [Suspect]
     Indication: PRODUCT USED FOR UNKNOWN INDICATION
     Route: 048
  29. PHOSPHONEUROS [Concomitant]
     Route: 048
  30. BICARBONATE DE SODIUM [Concomitant]
     Route: 048
  31. NOVORAPID [Concomitant]
     Dosage: TDD: 3-4-3
     Route: 058
  32. PIPERACILLIN AND TAZOBACTAM [Concomitant]
     Dates: start: 20100628, end: 20100719
  33. LANTUS [Concomitant]
     Route: 058
     Dates: start: 20100907, end: 20101001
  34. EPREX [Concomitant]
     Route: 058
  35. POTASSIUM CHLORIDE [Concomitant]
     Route: 048
  36. PANTOPRAZOLE SODIUM [Concomitant]
     Route: 048
  37. NOVORAPID [Concomitant]
     Route: 058
     Dates: start: 20100721, end: 20101001
  38. IMMUNE GLOBULIN IV NOS [Concomitant]
     Dosage: REPORTED AS: CLAIRYG FREQ: DAILY
     Route: 042
     Dates: start: 20100926, end: 20100928
  39. AMLODIPINE BESYLATE [Concomitant]
     Route: 048

REACTIONS (2)
  - RENAL FAILURE ACUTE [None]
  - TRANSPLANT REJECTION [None]
